FAERS Safety Report 12046940 (Version 2)
Quarter: 2016Q4

REPORT INFORMATION
  Report Type: Spontaneous
  Country: CO (occurrence: CO)
  Receive Date: 20160209
  Receipt Date: 20161209
  Transmission Date: 20170206
  Serious: Yes (Hospitalization)
  Sender: FDA-Public Use
  Company Number: CO-AMGEN-COLSP2015124369

PATIENT
  Age: 82 Year
  Sex: Female

DRUGS (1)
  1. ENBREL [Suspect]
     Active Substance: ETANERCEPT
     Indication: RHEUMATOID ARTHRITIS
     Dosage: 50 MG, WEEKLY
     Route: 058
     Dates: start: 2012, end: 201508

REACTIONS (11)
  - Joint swelling [Recovered/Resolved]
  - Oedema peripheral [Recovered/Resolved]
  - Hypersensitivity [Recovered/Resolved]
  - Joint swelling [Unknown]
  - Pruritus generalised [Recovered/Resolved]
  - Skin disorder [Recovered/Resolved]
  - Expired product administered [Unknown]
  - Arthritis [Recovered/Resolved]
  - Rash generalised [Recovered/Resolved]
  - Drug ineffective [Recovered/Resolved]
  - Erythema [Recovered/Resolved]

NARRATIVE: CASE EVENT DATE: 2014
